FAERS Safety Report 7170655-X (Version None)
Quarter: 2010Q4

REPORT INFORMATION
  Report Type: 
  Country: None (occurrence: None)
  Receive Date: 20101217
  Receipt Date: 20101208
  Transmission Date: 20110411
  Serious: Yes (Hospitalization, Other)
  Sender: FDA-Public Use
  Company Number: B0686073A

PATIENT
  Age: 42 Year
  Sex: Female

DRUGS (1)
  1. CEFTAZIDIME [Suspect]
     Dosage: 3G SINGLE DOSE
     Route: 042

REACTIONS (6)
  - CHEST DISCOMFORT [None]
  - DYSPNOEA [None]
  - HYPERSENSITIVITY [None]
  - PALLOR [None]
  - PALPITATIONS [None]
  - PRURITUS [None]
